FAERS Safety Report 22080086 (Version 1)
Quarter: 2023Q1

REPORT INFORMATION
  Report Type: Spontaneous
  Country: GB (occurrence: None)
  Receive Date: 20230309
  Receipt Date: 20230309
  Transmission Date: 20230417
  Serious: Yes (Disabling)
  Sender: FDA-Public Use
  Company Number: None

PATIENT
  Age: 41 Year
  Sex: Female
  Weight: 6.03 kg

DRUGS (1)
  1. ABILIFY [Suspect]
     Active Substance: ARIPIPRAZOLE
     Indication: Schizoaffective disorder

REACTIONS (10)
  - Malaise [None]
  - Abdominal pain upper [None]
  - Loss of consciousness [None]
  - Fatigue [None]
  - Headache [None]
  - Dizziness [None]
  - Sleep disorder [None]
  - Abnormal dreams [None]
  - Urinary incontinence [None]
  - Tremor [None]

NARRATIVE: CASE EVENT DATE: 20230103
